FAERS Safety Report 9115012 (Version 1)
Quarter: 2013Q1

REPORT INFORMATION
  Report Type: Report from Study
  Country: US (occurrence: US)
  Receive Date: 20130208
  Receipt Date: 20130208
  Transmission Date: 20140127
  Serious: No
  Sender: FDA-Public Use
  Company Number: US-VERTEX PHARMACEUTICALS INC.-2013-001696

PATIENT
  Sex: Female

DRUGS (9)
  1. VX-950 (TELAPREVIR) [Suspect]
     Indication: HEPATITIS C
     Dosage: 750 MG, TID
     Route: 048
     Dates: start: 20130111, end: 201301
  2. RIBASPHERE [Suspect]
     Indication: HEPATITIS C
     Dosage: 600 MG, BID
     Route: 048
     Dates: start: 20130111
  3. PEGASYS [Suspect]
     Indication: HEPATITIS C
     Dosage: 180 ?G, QW
     Route: 058
     Dates: start: 20130111
  4. JANUVIA [Concomitant]
     Dosage: 50 MG, QD
     Route: 048
  5. SYNTHROID [Concomitant]
     Dosage: 75 ?G, QD
     Route: 048
  6. AVAPRO [Concomitant]
     Dosage: 300 MG, QD
     Route: 048
  7. LISINOPRIL AND HYDROCHLOROTHIAZIDE [Concomitant]
     Dosage: 20-25 MG,QD
     Route: 048
  8. MULTIVITAMINS [Concomitant]
     Dosage: UNK, QD
     Route: 048
  9. OMEPRAZOLE [Concomitant]
     Dosage: 20 MG, QD
     Route: 048

REACTIONS (1)
  - Urticaria [Unknown]
